FAERS Safety Report 4712604-7 (Version None)
Quarter: 2005Q3

REPORT INFORMATION
  Report Type: 
  Country: None (occurrence: None)
  Receive Date: 20050712
  Receipt Date: 20050701
  Transmission Date: 20060218
  Serious: Yes (Death)
  Sender: FDA-Public Use
  Company Number: FR-MERCK-0507FRA00001

PATIENT
  Age: 56 Year
  Sex: Male
  Weight: 80 kg

DRUGS (8)
  1. ZETIA [Suspect]
     Indication: HYPERCHOLESTEROLAEMIA
     Route: 048
     Dates: start: 20050607, end: 20050601
  2. ZETIA [Suspect]
     Indication: HYPERTRIGLYCERIDAEMIA
     Route: 048
     Dates: start: 20050607, end: 20050601
  3. ROSUVASTATIN CALCIUM [Suspect]
     Indication: HYPERCHOLESTEROLAEMIA
     Route: 048
     Dates: start: 20050601, end: 20050601
  4. ROSUVASTATIN CALCIUM [Suspect]
     Indication: HYPERTRIGLYCERIDAEMIA
     Route: 048
     Dates: start: 20050601, end: 20050601
  5. PERINDOPRIL ERBUMINE [Concomitant]
     Route: 048
     Dates: end: 20050601
  6. ATENOLOL [Concomitant]
     Route: 048
     Dates: end: 20050601
  7. NIFEDIPINE [Concomitant]
     Route: 048
  8. CLOPIDOGREL BISULFATE [Concomitant]
     Indication: THROMBOSIS PROPHYLAXIS
     Route: 048
     Dates: end: 20050601

REACTIONS (1)
  - SUDDEN DEATH [None]
